FAERS Safety Report 22102179 (Version 2)
Quarter: 2023Q1

REPORT INFORMATION
  Report Type: Spontaneous
  Country: IT (occurrence: IT)
  Receive Date: 20230316
  Receipt Date: 20230324
  Transmission Date: 20230418
  Serious: Yes (Other)
  Sender: FDA-Public Use
  Company Number: IT-BoehringerIngelheim-2023-BI-224525

PATIENT
  Age: 90 Year
  Sex: Male

DRUGS (5)
  1. PRAXBIND [Suspect]
     Active Substance: IDARUCIZUMAB
     Indication: Traumatic intracranial haemorrhage
     Dosage: 2.5G / 50ML (1 VIALS + 1 VIALS) (1 VIAL IN 10 MINUTES)
     Route: 042
     Dates: start: 20230311, end: 20230311
  2. PRAXBIND [Suspect]
     Active Substance: IDARUCIZUMAB
     Dosage: 1 VIAL IN THE FOLLOWING 10 MINUTES
     Route: 042
     Dates: start: 20230311, end: 20230311
  3. finasteride ABC [Concomitant]
     Indication: Product used for unknown indication
  4. ATORVASTATIN [Concomitant]
     Active Substance: ATORVASTATIN
     Indication: Product used for unknown indication
     Dosage: 1 CPR (AS REPORTED)
  5. CLOPIDOGREL [Concomitant]
     Active Substance: CLOPIDOGREL BISULFATE
     Indication: Product used for unknown indication

REACTIONS (2)
  - Hyperpyrexia [Recovered/Resolved]
  - Sopor [Recovered/Resolved]

NARRATIVE: CASE EVENT DATE: 20230311
